FAERS Safety Report 6441599-3 (Version None)
Quarter: 2009Q4

REPORT INFORMATION
  Report Type: 
  Country: None (occurrence: None)
  Receive Date: 20091116
  Receipt Date: 20091102
  Transmission Date: 20100525
  Serious: Yes (Death, Hospitalization)
  Sender: FDA-Public Use
  Company Number: JP-AMGEN-US326339

PATIENT
  Sex: Male
  Weight: 59 kg

DRUGS (6)
  1. ENBREL [Suspect]
     Indication: RHEUMATOID ARTHRITIS
     Route: 058
     Dates: start: 20070330, end: 20070928
  2. RIMATIL [Concomitant]
     Route: 045
     Dates: start: 20040528, end: 20070705
  3. PREDONINE [Concomitant]
     Route: 048
     Dates: start: 20040917, end: 20070928
  4. RHEUMATREX [Concomitant]
     Route: 048
     Dates: start: 20030307, end: 20030417
  5. RHEUMATREX [Concomitant]
     Route: 048
     Dates: start: 20030418, end: 20030520
  6. RHEUMATREX [Concomitant]
     Route: 048
     Dates: start: 20030530, end: 20070419

REACTIONS (2)
  - CONDITION AGGRAVATED [None]
  - RHEUMATOID LUNG [None]
